FAERS Safety Report 7764095-X (Version None)
Quarter: 2011Q3

REPORT INFORMATION
  Report Type: 
  Country: None (occurrence: None)
  Receive Date: 20110916
  Receipt Date: 20110908
  Transmission Date: 20111222
  Serious: Yes (Other)
  Sender: FDA-Public Use
  Company Number: GER/UKI/11/0020681

PATIENT
  Age: 76 Year
  Sex: Male

DRUGS (17)
  1. CANDESARTAN CILEXETIL [Suspect]
     Indication: PRODUCT USED FOR UNKNOWN INDICATION
  2. TAMSULOSIN HCL [Suspect]
     Indication: PRODUCT USED FOR UNKNOWN INDICATION
  3. FINASTERIDE [Suspect]
     Indication: PRODUCT USED FOR UNKNOWN INDICATION
     Dosage: 5 MG, 1 DOSAGE, ORAL
     Route: 048
     Dates: start: 20091229
  4. FINASTERIDE [Suspect]
     Indication: PRODUCT USED FOR UNKNOWN INDICATION
     Dosage: 5 MG, 1 DOSAGE, ORAL
     Route: 048
     Dates: start: 20100323
  5. FINASTERIDE [Suspect]
     Indication: PRODUCT USED FOR UNKNOWN INDICATION
     Dosage: 5 MG, 1 DOSAGE, ORAL
     Route: 048
     Dates: start: 20100616
  6. FINASTERIDE [Suspect]
     Indication: PRODUCT USED FOR UNKNOWN INDICATION
     Dosage: 5 MG, 1 DOSAGE, ORAL
     Route: 048
     Dates: start: 20100519
  7. FINASTERIDE [Suspect]
     Indication: PRODUCT USED FOR UNKNOWN INDICATION
     Dosage: 5 MG, 1 DOSAGE, ORAL
     Route: 048
     Dates: start: 20091127
  8. FINASTERIDE [Suspect]
     Indication: PRODUCT USED FOR UNKNOWN INDICATION
     Dosage: 5 MG, 1 DOSAGE, ORAL
     Route: 048
     Dates: start: 20100119
  9. FINASTERIDE [Suspect]
     Indication: PRODUCT USED FOR UNKNOWN INDICATION
     Dosage: 5 MG, 1 DOSAGE, ORAL
     Route: 048
     Dates: start: 20100219
  10. FINASTERIDE [Suspect]
     Indication: PRODUCT USED FOR UNKNOWN INDICATION
     Dosage: 5 MG, 1 DOSAGE, ORAL
     Route: 048
     Dates: start: 20110810
  11. FINASTERIDE [Suspect]
     Indication: PRODUCT USED FOR UNKNOWN INDICATION
     Dosage: 5 MG, 1 DOSAGE, ORAL
     Route: 048
     Dates: start: 20100414
  12. BETA BLOCKER (BETA BLOCKING AGENTS) [Suspect]
     Indication: PRODUCT USED FOR UNKNOWN INDICATION
  13. SENNA-MINT WAF [Suspect]
     Indication: PRODUCT USED FOR UNKNOWN INDICATION
     Dosage: 7.5 MG, 60 TABLETS
  14. LOSARTAN POTASSIUM [Suspect]
     Indication: PRODUCT USED FOR UNKNOWN INDICATION
     Dosage: 100 MG, 1 IN 1 D
     Dates: start: 20110713
  15. ASPIRIN [Suspect]
     Indication: PRODUCT USED FOR UNKNOWN INDICATION
     Dosage: 75 MG
     Dates: start: 20110517
  16. SIMVASTATIN [Suspect]
     Indication: PRODUCT USED FOR UNKNOWN INDICATION
     Dosage: 40 MG, 1 IN 1 D
     Dates: start: 20110704
  17. FLECAINIDE ACETATE [Concomitant]

REACTIONS (13)
  - PALPITATIONS [None]
  - ATRIOVENTRICULAR BLOCK FIRST DEGREE [None]
  - DRUG INTERACTION [None]
  - DIZZINESS POSTURAL [None]
  - HAEMATURIA [None]
  - BLOOD PRESSURE SYSTOLIC INCREASED [None]
  - RENAL CYST [None]
  - PROSTATIC SPECIFIC ANTIGEN INCREASED [None]
  - LOSS OF CONSCIOUSNESS [None]
  - HEART VALVE INCOMPETENCE [None]
  - VENTRICULAR EXTRASYSTOLES [None]
  - AORTIC BRUIT [None]
  - PROSTATIC DISORDER [None]
